FAERS Safety Report 20335265 (Version 7)
Quarter: 2024Q1

REPORT INFORMATION
  Report Type: Spontaneous
  Country: CA (occurrence: CA)
  Receive Date: 20220114
  Receipt Date: 20240315
  Transmission Date: 20240409
  Serious: Yes (Death, Other)
  Sender: FDA-Public Use
  Company Number: CA-BAUSCH-BL-2022-000881

PATIENT
  Age: 57 Year
  Sex: Female

DRUGS (10)
  1. DEXAMETHASONE [Suspect]
     Active Substance: DEXAMETHASONE
     Indication: Product used for unknown indication
     Route: 065
  2. SANDOSTATIN [Suspect]
     Active Substance: OCTREOTIDE ACETATE
     Indication: Neuroendocrine tumour
     Route: 030
  3. SANDOSTATIN [Suspect]
     Active Substance: OCTREOTIDE ACETATE
     Indication: Carcinoid tumour
     Route: 030
  4. SANDOSTATIN [Suspect]
     Active Substance: OCTREOTIDE ACETATE
     Route: 030
  5. SANDOSTATIN [Suspect]
     Active Substance: OCTREOTIDE ACETATE
     Route: 030
  6. DEXAMETHASONE [Suspect]
     Active Substance: DEXAMETHASONE
     Indication: Product used for unknown indication
     Dosage: SOLUTION OPHTHALMIC
     Route: 065
  7. OCTREOTIDE ACETATE [Suspect]
     Active Substance: OCTREOTIDE ACETATE
     Indication: Neuroendocrine tumour
     Route: 030
  8. OCTREOTIDE ACETATE [Suspect]
     Active Substance: OCTREOTIDE ACETATE
     Indication: Carcinoid tumour
     Route: 030
  9. OCTREOTIDE ACETATE [Suspect]
     Active Substance: OCTREOTIDE ACETATE
     Route: 030
  10. OCTREOTIDE ACETATE [Suspect]
     Active Substance: OCTREOTIDE ACETATE
     Route: 030

REACTIONS (33)
  - Death [Fatal]
  - Abdominal pain [Fatal]
  - Abdominal pain lower [Fatal]
  - Abdominal pain upper [Fatal]
  - Arthralgia [Fatal]
  - Asthenia [Fatal]
  - Back pain [Fatal]
  - Body temperature decreased [Fatal]
  - Carcinoid tumour [Fatal]
  - Crying [Fatal]
  - Diarrhoea [Fatal]
  - Emotional disorder [Fatal]
  - Fatigue [Fatal]
  - Gait disturbance [Fatal]
  - Gastrointestinal pain [Fatal]
  - General physical health deterioration [Fatal]
  - Malignant neoplasm progression [Fatal]
  - Myalgia [Fatal]
  - Neuroendocrine tumour [Fatal]
  - Oesophageal pain [Fatal]
  - Ovarian mass [Fatal]
  - Pain [Fatal]
  - Pain in extremity [Fatal]
  - Productive cough [Fatal]
  - Sputum discoloured [Fatal]
  - Blood pressure increased [Fatal]
  - Blood pressure systolic increased [Fatal]
  - Malaise [Fatal]
  - Nausea [Fatal]
  - Bradycardia [Fatal]
  - COVID-19 [Fatal]
  - Drug ineffective [Fatal]
  - Incorrect dose administered [Fatal]
